FAERS Safety Report 15043198 (Version 4)
Quarter: 2018Q4

REPORT INFORMATION
  Report Type: Report from Study
  Country: None (occurrence: US)
  Receive Date: 20180621
  Receipt Date: 20181010
  Transmission Date: 20190204
  Serious: Yes (Hospitalization)
  Sender: FDA-Public Use
  Company Number: US-ABBVIE-18K-163-2394197-00

PATIENT
  Age: 36 Year
  Sex: Female
  Weight: 99.88 kg

DRUGS (15)
  1. HUMIRA [Suspect]
     Active Substance: ADALIMUMAB
     Indication: CROHN^S DISEASE
     Dosage: FREQUENCY OF TAKING HUMIRA GENERALLY VARIES FROM ONCE A WEEK TO ONCE EVERY OTHER WEEK.
     Route: 058
     Dates: start: 2003, end: 2018
  2. CURAMED TURMERIC [Concomitant]
     Indication: PAIN
  3. RESTASIS [Concomitant]
     Active Substance: CYCLOSPORINE
     Indication: VISION BLURRED
  4. HUMIRA [Suspect]
     Active Substance: ADALIMUMAB
     Dosage: FREQUENCY OF TAKING HUMIRA GENERALLY VARIES FROM ONCE A WEEK TO ONCE EVERY OTHER WEEK.
     Route: 058
     Dates: start: 2018
  5. DEVIL^S CLAW [Concomitant]
     Active Substance: HERBALS
     Indication: OSTEOARTHRITIS
  6. VALTREX [Concomitant]
     Active Substance: VALACYCLOVIR HYDROCHLORIDE
     Indication: HERPES ZOSTER
  7. XANAX [Concomitant]
     Active Substance: ALPRAZOLAM
     Indication: ANXIETY
  8. LISINOPRIL AND HYDROCHLOROTHIAZIDE [Concomitant]
     Active Substance: HYDROCHLOROTHIAZIDE\LISINOPRIL
     Indication: FLUID RETENTION
  9. CEFUROXIME. [Concomitant]
     Active Substance: CEFUROXIME
     Indication: LYME DISEASE
  10. VITAMIN D [Concomitant]
     Active Substance: CHOLECALCIFEROL
     Indication: SUPPLEMENTATION THERAPY
  11. DIFLUCAN [Concomitant]
     Active Substance: FLUCONAZOLE
     Indication: ANTIFUNGAL PROPHYLAXIS
  12. RIFAMPIN. [Concomitant]
     Active Substance: RIFAMPIN
     Indication: CARDIAC DISORDER
  13. VITAMIN C [Concomitant]
     Active Substance: ASCORBIC ACID
     Indication: SUPPLEMENTATION THERAPY
  14. LISINOPRIL AND HYDROCHLOROTHIAZIDE [Concomitant]
     Active Substance: HYDROCHLOROTHIAZIDE\LISINOPRIL
     Indication: HYPERTENSION
  15. AZITHROMYCIN ANHYDROUS. [Concomitant]
     Active Substance: AZITHROMYCIN ANHYDROUS
     Indication: PRODUCT USED FOR UNKNOWN INDICATION

REACTIONS (10)
  - Lyme disease [Recovering/Resolving]
  - Fatigue [Unknown]
  - Amnesia [Unknown]
  - Myalgia [Unknown]
  - Visual impairment [Unknown]
  - Pemphigoid [Unknown]
  - American trypanosomiasis [Recovering/Resolving]
  - Gingival disorder [Unknown]
  - Arthropod bite [Recovering/Resolving]
  - Rocky mountain spotted fever [Recovering/Resolving]

NARRATIVE: CASE EVENT DATE: 2018
